FAERS Safety Report 9467092 (Version 2)
Quarter: 2013Q3

REPORT INFORMATION
  Report Type: Spontaneous
  Country: PT (occurrence: PT)
  Receive Date: 20130820
  Receipt Date: 20130830
  Transmission Date: 20140515
  Serious: Yes (Life-Threatening, Hospitalization, Other)
  Sender: FDA-Public Use
  Company Number: PT-ACTAVIS-2013-14571

PATIENT
  Age: 76 Year
  Sex: Female

DRUGS (4)
  1. METFORMIN (UNKNOWN) [Suspect]
     Indication: DIABETES MELLITUS
     Dosage: 1000 MG, TID
     Route: 065
  2. LOSARTAN POTASSIUM-HCTZ (UNKNOWN) [Suspect]
     Indication: HYPERTENSION
     Dosage: UNK
     Route: 065
  3. SIMVASTATIN [Concomitant]
     Indication: PRODUCT USED FOR UNKNOWN INDICATION
     Dosage: UNK
     Route: 065
  4. SITAGLIPTIN [Concomitant]
     Indication: DIABETES MELLITUS
     Dosage: UNK
     Route: 065

REACTIONS (3)
  - Metabolic acidosis [Recovered/Resolved]
  - Hypovolaemic shock [Recovered/Resolved]
  - Renal failure acute [Recovered/Resolved]
